FAERS Safety Report 7401267-8 (Version None)
Quarter: 2011Q2

REPORT INFORMATION
  Report Type: 
  Country: None (occurrence: None)
  Receive Date: 20110407
  Receipt Date: 20110331
  Transmission Date: 20111010
  Serious: Yes (Death, Hospitalization)
  Sender: FDA-Public Use
  Company Number: US-CELGENEUS-163-CCAZA-11033641

PATIENT
  Age: 80 Year
  Sex: Female
  Weight: 78 kg

DRUGS (3)
  1. AZACITIDINE [Suspect]
     Dosage: 75 MILLIGRAM/SQ. METER
     Route: 058
     Dates: start: 20100506, end: 20100512
  2. HYDROXYUREA [Suspect]
     Dosage: 1500 MILLIGRAM
     Route: 048
     Dates: start: 20100428, end: 20100428
  3. MYLOTARG [Suspect]
     Dosage: 3 MILLIGRAM/SQ. METER
     Route: 051
     Dates: start: 20100513, end: 20100513

REACTIONS (6)
  - MYOCARDIAL INFARCTION [None]
  - HYPOTENSION [None]
  - ACUTE MYELOID LEUKAEMIA [None]
  - MYOCARDIAL ISCHAEMIA [None]
  - RESPIRATORY DISTRESS [None]
  - PULMONARY OEDEMA [None]
